FAERS Safety Report 8314371-7 (Version None)
Quarter: 2012Q2

REPORT INFORMATION
  Report Type: 
  Country: None (occurrence: None)
  Receive Date: 20120426
  Receipt Date: 20120411
  Transmission Date: 20120825
  Serious: Yes (Hospitalization)
  Sender: FDA-Public Use
  Company Number: US-ROCHE-1058781

PATIENT
  Age: 67 Year
  Sex: Female
  Weight: 74 kg

DRUGS (13)
  1. HERCEPTIN [Suspect]
     Indication: BREAST CANCER
     Dosage: OVER 90 MIN ON DAY 1, WK 1 ONLY
     Route: 042
  2. HERCEPTIN [Suspect]
     Dosage: OVER 30-90 MIN ON DAY 1 Q 3 WKS UNTIL 1 YR AFTER 1ST TRASTUZUMAB DOSE
     Route: 042
     Dates: start: 20111108
  3. TRAVATAN Z [Concomitant]
  4. ATIVAN [Concomitant]
  5. KLOR-CON [Concomitant]
  6. CYCLOPHOSPHAMIDE [Suspect]
     Indication: BREAST CANCER
     Dosage: OVER 30 MIN ON DAY 1 X 4 CYCLES (CYCLES 1 TO 4)
     Route: 042
     Dates: start: 20111108
  7. TRUSOPT [Concomitant]
  8. LASIX [Concomitant]
  9. TRAZODONE HCL [Concomitant]
  10. METOPROLOL TARTRATE [Concomitant]
  11. HERCEPTIN [Suspect]
     Dosage: OVER 30 MIN X 11 DOSES
     Route: 042
  12. DOXORUBICIN HCL [Suspect]
     Indication: BREAST CANCER
     Dosage: OVER 15 MIN ON DAY 1 X 4 CYCLES (CYCLES 1-4)
     Route: 042
     Dates: start: 20111108
  13. PACLITAXEL [Suspect]
     Indication: BREAST CANCER
     Dosage: OVER 60 MIN X 12 DOSES, TOTAL DOSE : 290 MG
     Route: 042

REACTIONS (1)
  - SPLENIC INFARCTION [None]
